FAERS Safety Report 6312850 (Version 4)
Quarter: 2017Q3

REPORT INFORMATION
  Report Type: Spontaneous
  Country: US (occurrence: US)
  Receive Date: 20061108
  Receipt Date: 20170925
  Transmission Date: 20171128
  Serious: Yes (Death, Hospitalization, Other)
  Sender: FDA-Public Use
  Company Number: US-PFIZER INC-2006133515

PATIENT
  Age: 89 Year
  Sex: Female

DRUGS (2)
  1. VIOXX [Suspect]
     Active Substance: ROFECOXIB
     Dosage: UNK
     Dates: start: 20040101, end: 20040930
  2. CELEBREX [Suspect]
     Active Substance: CELECOXIB
     Indication: PAIN
     Dosage: 100 MG, 1X/DAY
     Dates: start: 20001208, end: 20010108

REACTIONS (3)
  - Myocardial infarction [Unknown]
  - Ischaemic stroke [Unknown]
  - Cardiac failure [Fatal]

NARRATIVE: CASE EVENT DATE: 20041028
